FAERS Safety Report 9484464 (Version 2)
Quarter: 2013Q3

REPORT INFORMATION
  Report Type: Spontaneous
  Country: CA (occurrence: CA)
  Receive Date: 20130828
  Receipt Date: 20130828
  Transmission Date: 20140515
  Serious: Yes (Death, Hospitalization)
  Sender: FDA-Public Use
  Company Number: CA-AMGEN-KDL326647

PATIENT
  Age: 77 Year
  Sex: Male
  Weight: 77.2 kg

DRUGS (4)
  1. ENBREL [Suspect]
     Indication: RHEUMATOID ARTHRITIS
     Dosage: UNK UNK, QWK
     Route: 065
     Dates: start: 20081215
  2. LAXATIVES [Concomitant]
  3. PREDNISONE [Concomitant]
  4. NIFEDIPINE [Concomitant]

REACTIONS (11)
  - Death [Fatal]
  - Myocarditis [Unknown]
  - Gastric ulcer haemorrhage [Recovered/Resolved]
  - Constipation [Unknown]
  - Cardiac failure congestive [Unknown]
  - Dyspnoea [Unknown]
  - Therapeutic response decreased [Unknown]
  - Rheumatoid arthritis [Unknown]
  - Rash macular [Recovering/Resolving]
  - Diarrhoea [Unknown]
  - Abdominal pain [Unknown]
